FAERS Safety Report 9839280 (Version 2)
Quarter: 2014Q1

REPORT INFORMATION
  Report Type: Spontaneous
  Country: US (occurrence: US)
  Receive Date: 20140123
  Receipt Date: 20140131
  Transmission Date: 20141002
  Serious: Yes (Hospitalization)
  Sender: FDA-Public Use
  Company Number: US-ASTRAZENECA-2014SE02952

PATIENT
  Age: 46 Day
  Sex: Male

DRUGS (2)
  1. SYNAGIS [Suspect]
     Route: 030
     Dates: start: 201311
  2. CLINDAMYCIN [Concomitant]
     Dosage: 75 MG/5ML THREE TIMES A DAY 2ML
     Route: 048
     Dates: end: 20140114

REACTIONS (3)
  - Respiratory distress [Recovered/Resolved]
  - Eczema [Recovered/Resolved]
  - Pyrexia [Recovered/Resolved]
